FAERS Safety Report 4415234-X (Version None)
Quarter: 2004Q3

REPORT INFORMATION
  Report Type: 
  Country: None (occurrence: None)
  Receive Date: 20040729
  Receipt Date: 20040719
  Transmission Date: 20050211
  Serious: Yes (Other)
  Sender: FDA-Public Use
  Company Number: 2004219679GB

PATIENT
  Age: 19 Year
  Sex: Female
  Weight: 51.8 kg

DRUGS (3)
  1. DEPO-PROVERA [Suspect]
     Indication: CONTRACEPTION
     Dosage: 150 MG, LAST INJECTION, INTRAMUSCULAR
     Route: 030
     Dates: start: 20031027, end: 20031027
  2. DEPO-PROVERA [Suspect]
     Indication: CONTRACEPTION
     Dosage: 150 MG, LAST INJECTION, INTRAMUSCULAR
     Route: 030
     Dates: start: 20040126, end: 20040126
  3. ESCITALOPRAM OXALATE [Suspect]
     Indication: DEPRESSION
     Dosage: ORAL
     Route: 048
     Dates: start: 20031101, end: 20031209

REACTIONS (3)
  - CHOLANGITIS [None]
  - CONTUSION [None]
  - HEPATITIS CHRONIC ACTIVE [None]
